FAERS Safety Report 21692380 (Version 1)
Quarter: 2022Q4

REPORT INFORMATION
  Report Type: Other
  Country: US (occurrence: None)
  Receive Date: 20221207
  Receipt Date: 20221207
  Transmission Date: 20230112
  Serious: Yes (Other)
  Sender: FDA-Public Use
  Company Number: US-ROCHE-3227988

PATIENT
  Age: 71 Year
  Sex: Female

DRUGS (1)
  1. HEMLIBRA [Suspect]
     Active Substance: EMICIZUMAB-KXWH
     Indication: Autoimmune disorder
     Dosage: INJECT 300MG (2ML)
     Route: 058

REACTIONS (2)
  - Deafness [Unknown]
  - Off label use [Unknown]
